FAERS Safety Report 5474244-4 (Version None)
Quarter: 2007Q4

REPORT INFORMATION
  Report Type: 
  Country: None (occurrence: None)
  Receive Date: 20071002
  Receipt Date: 20070605
  Transmission Date: 20080405
  Serious: No
  Sender: FDA-Public Use
  Company Number: US-ASTRAZENECA-2007UW13626

PATIENT
  Age: 60 Year
  Sex: Female
  Weight: 62.6 kg

DRUGS (1)
  1. ARIMIDEX [Suspect]
     Indication: BREAST CANCER
     Route: 048
     Dates: start: 20070105, end: 20070505

REACTIONS (4)
  - BONE PAIN [None]
  - CRYING [None]
  - HOT FLUSH [None]
  - HYPERHIDROSIS [None]
